FAERS Safety Report 15565612 (Version 2)
Quarter: 2018Q4

REPORT INFORMATION
  Report Type: Spontaneous
  Country: CA (occurrence: CA)
  Receive Date: 20181030
  Receipt Date: 20181101
  Transmission Date: 20190205
  Serious: Yes (Hospitalization)
  Sender: FDA-Public Use
  Company Number: CA-CELLTRION INC.-2018CA021365

PATIENT

DRUGS (7)
  1. INFLECTRA [Suspect]
     Active Substance: INFLIXIMAB-DYYB
     Dosage: 500 MG, CYCLIC(EVERY 0,2,6 WEEKS THEN EVERY 8WEEKS)
     Route: 042
     Dates: start: 20181017
  2. INFLECTRA [Suspect]
     Active Substance: INFLIXIMAB-DYYB
     Dosage: UNK
     Dates: start: 20180725
  3. INFLECTRA [Suspect]
     Active Substance: INFLIXIMAB-DYYB
     Dosage: 500 MG, CYCLIC(EVERY 0,2,6 WEEKS THEN EVERY 8WEEKS)
     Route: 042
     Dates: start: 20181017
  4. INFLECTRA [Suspect]
     Active Substance: INFLIXIMAB-DYYB
     Indication: CROHN^S DISEASE
     Dosage: 500 MG, CYCLIC(EVERY 0,2,6 WEEKS THEN EVERY 8WEEKS)
     Route: 042
     Dates: start: 20180711
  5. ENTOCORT [Concomitant]
     Active Substance: BUDESONIDE
     Dosage: UNK
  6. INFLECTRA [Suspect]
     Active Substance: INFLIXIMAB-DYYB
     Dosage: UNK
     Dates: start: 20180823
  7. INFLECTRA [Suspect]
     Active Substance: INFLIXIMAB-DYYB
     Dosage: 500 MG, CYCLIC(EVERY 0,2,6 WEEKS THEN EVERY 8WEEKS)
     Route: 042
     Dates: start: 20181017

REACTIONS (5)
  - Herpes zoster [Recovering/Resolving]
  - Blood pressure fluctuation [Unknown]
  - Condition aggravated [Unknown]
  - Product use issue [Unknown]
  - Heart rate irregular [Unknown]

NARRATIVE: CASE EVENT DATE: 20180803
